FAERS Safety Report 20956840 (Version 2)
Quarter: 2022Q2

REPORT INFORMATION
  Report Type: Report from Study
  Country: CA (occurrence: CA)
  Receive Date: 20220614
  Receipt Date: 20220629
  Transmission Date: 20220721
  Serious: Yes (Death)
  Sender: FDA-Public Use
  Company Number: CA-HLS-202201028

PATIENT
  Age: 42 Year
  Sex: Male
  Weight: 137 kg

DRUGS (3)
  1. CLOZARIL [Suspect]
     Active Substance: CLOZAPINE
     Indication: Schizophrenia
     Route: 048
     Dates: start: 2010
  2. propronolol [Concomitant]
     Indication: Product used for unknown indication
     Route: 048
     Dates: start: 2010, end: 202206
  3. SERTRALINE [Concomitant]
     Active Substance: SERTRALINE HYDROCHLORIDE
     Indication: Anxiety
     Route: 048
     Dates: end: 202206

REACTIONS (1)
  - Cardiac failure [Fatal]
